FAERS Safety Report 6618171-5 (Version None)
Quarter: 2010Q1

REPORT INFORMATION
  Report Type: 
  Country: None (occurrence: None)
  Receive Date: 20100308
  Receipt Date: 20100303
  Transmission Date: 20100710
  Serious: Yes (Hospitalization)
  Sender: FDA-Public Use
  Company Number: FR-ROCHE-688469

PATIENT
  Sex: Male

DRUGS (11)
  1. ROCEPHIN [Suspect]
     Dosage: STRENGTH: 1G/3.5ML; FORM: POWDER AND SOLVENT FOR SOLUTION FOR INJECTION
     Route: 030
     Dates: start: 20100121, end: 20100204
  2. PREVISCAN [Suspect]
     Indication: ATRIAL FIBRILLATION
     Dosage: DOSE: DEPENDING ON INR
     Route: 048
     Dates: end: 20100127
  3. PREVISCAN [Suspect]
     Route: 048
     Dates: start: 20100203
  4. AUGMENTIN [Concomitant]
     Dates: start: 20100107, end: 20100120
  5. ROVAMYCINE [Concomitant]
     Dates: start: 20100107, end: 20100120
  6. BISOPROLOL [Concomitant]
  7. LASILIX [Concomitant]
  8. ALDACTONE [Concomitant]
  9. TRIATEC [Concomitant]
  10. TIAPRIDAL [Concomitant]
  11. INIPOMP [Concomitant]

REACTIONS (2)
  - INTERNATIONAL NORMALISED RATIO INCREASED [None]
  - RECTAL HAEMORRHAGE [None]
